FAERS Safety Report 5422170-9 (Version None)
Quarter: 2007Q3

REPORT INFORMATION
  Report Type: 
  Country: None (occurrence: None)
  Receive Date: 20070821
  Receipt Date: 20070821
  Transmission Date: 20080115
  Serious: Yes (Other)
  Sender: FDA-Public Use
  Company Number: None

PATIENT
  Sex: Male
  Weight: 68.856 kg

DRUGS (2)
  1. ACCUPRIL [Suspect]
     Indication: HYPERTENSION
     Dosage: 40MG QD PO
     Route: 048
     Dates: start: 20060814, end: 20070815
  2. NAPROSYN [Suspect]
     Indication: PAIN
     Dosage: 375 MG BID PRN PO
     Route: 048
     Dates: start: 20061228, end: 20070815

REACTIONS (1)
  - LIP SWELLING [None]
